FAERS Safety Report 8455592-2 (Version None)
Quarter: 2012Q2

REPORT INFORMATION
  Report Type: 
  Country: None (occurrence: None)
  Receive Date: 20120621
  Receipt Date: 20120612
  Transmission Date: 20120825
  Serious: Yes (Other)
  Sender: FDA-Public Use
  Company Number: US-ASTRAZENECA-2011SE53891

PATIENT
  Age: 51 Year
  Sex: Female
  Weight: 77.6 kg

DRUGS (8)
  1. CO-ENZYMES [Concomitant]
     Indication: ADVERSE DRUG REACTION
  2. SIMVASTATIN [Concomitant]
  3. ASPIRIN [Concomitant]
  4. PLAVIX [Concomitant]
  5. CRESTOR [Suspect]
     Route: 048
  6. SYNTHROID [Concomitant]
     Indication: THYROID DISORDER
  7. OMEPRAZOLE [Concomitant]
     Indication: GASTRIC DISORDER
  8. CRESTOR [Suspect]
     Indication: BLOOD CHOLESTEROL INCREASED
     Route: 048
     Dates: start: 20100901

REACTIONS (8)
  - ECZEMA [None]
  - DRUG PRESCRIBING ERROR [None]
  - MYOCARDIAL INFARCTION [None]
  - DRUG DOSE OMISSION [None]
  - IRRITABLE BOWEL SYNDROME [None]
  - AMNESIA [None]
  - VISION BLURRED [None]
  - WRONG TECHNIQUE IN DRUG USAGE PROCESS [None]
